FAERS Safety Report 9902866 (Version 4)
Quarter: 2017Q3

REPORT INFORMATION
  Report Type: Report from Study
  Country: CA (occurrence: CA)
  Receive Date: 20140217
  Receipt Date: 20170825
  Transmission Date: 20171128
  Serious: Yes (Other)
  Sender: FDA-Public Use
  Company Number: PHHY2014CA014473

PATIENT
  Age: 46 Year
  Sex: Female

DRUGS (1)
  1. GILENYA [Suspect]
     Active Substance: FINGOLIMOD HYDROCHLORIDE
     Indication: RELAPSING-REMITTING MULTIPLE SCLEROSIS
     Dosage: 0.5 MG, QD
     Route: 048
     Dates: start: 20131101, end: 20170816

REACTIONS (4)
  - Unresponsive to stimuli [Unknown]
  - Fatigue [Unknown]
  - Ankle fracture [Not Recovered/Not Resolved]
  - Mydriasis [Unknown]

NARRATIVE: CASE EVENT DATE: 20140107
